FAERS Safety Report 12313298 (Version 2)
Quarter: 2016Q2

REPORT INFORMATION
  Report Type: Spontaneous
  Country: US (occurrence: US)
  Receive Date: 20160428
  Receipt Date: 20160601
  Transmission Date: 20160815
  Serious: No
  Sender: FDA-Public Use
  Company Number: US-PFIZER INC-2016194573

PATIENT
  Age: 54 Year
  Sex: Male

DRUGS (4)
  1. OXYCODONE-ACET [Concomitant]
     Dosage: OXYCODONE 75 MG/ACETAMINOPHEN 32 MG, 3X/DAY
     Dates: start: 20160325
  2. LYRICA [Suspect]
     Active Substance: PREGABALIN
     Indication: SCIATICA
     Dosage: 100 MG, 3X/DAY
     Dates: start: 20160325
  3. CLONAZEPAM. [Concomitant]
     Active Substance: CLONAZEPAM
     Indication: ATTENTION DEFICIT/HYPERACTIVITY DISORDER
     Dosage: 2 M, 2X/DAY
  4. CLONAZEPAM. [Concomitant]
     Active Substance: CLONAZEPAM
     Indication: ANXIETY DISORDER

REACTIONS (1)
  - Drug ineffective [Not Recovered/Not Resolved]
